FAERS Safety Report 9709086 (Version 1)
Quarter: 2013Q4

REPORT INFORMATION
  Report Type: Spontaneous
  Country: GB (occurrence: GB)
  Receive Date: 20131125
  Receipt Date: 20131125
  Transmission Date: 20140711
  Serious: Yes (Hospitalization)
  Sender: FDA-Public Use
  Company Number: GB-ACTAVIS-2013-21586

PATIENT
  Age: 34 Year
  Sex: Female

DRUGS (3)
  1. DOCETAXEL (UNKNOWN) [Suspect]
     Indication: PRODUCT USED FOR UNKNOWN INDICATION
     Dosage: 126 MG, UNK
     Route: 042
     Dates: start: 20080123
  2. ZOLEDRONIC ACID (UNKNOWN) [Suspect]
     Indication: BREAST CANCER METASTATIC
     Dosage: 4 MG, MONTHLY
     Route: 042
     Dates: start: 20071015, end: 20080305
  3. AVASTIN /01555201/ [Suspect]
     Indication: PRODUCT USED FOR UNKNOWN INDICATION
     Dosage: 967 MG, UNK
     Route: 042
     Dates: start: 20080123

REACTIONS (1)
  - Tooth abscess [Recovered/Resolved with Sequelae]
